FAERS Safety Report 7352785-2 (Version None)
Quarter: 2011Q1

REPORT INFORMATION
  Report Type: 
  Country: None (occurrence: None)
  Receive Date: 20110315
  Receipt Date: 20110310
  Transmission Date: 20110831
  Serious: Yes (Hospitalization)
  Sender: FDA-Public Use
  Company Number: FR-ROCHE-695039

PATIENT
  Sex: Male
  Weight: 59 kg

DRUGS (11)
  1. RIBAVIRIN [Suspect]
     Dosage: PERMANANTLY DISCONTINUED.
     Route: 048
     Dates: start: 20100217, end: 20101103
  2. REYATAZ [Concomitant]
     Dates: start: 20080318
  3. ACETAMINOPHEN [Concomitant]
     Dosage: TOTAL DAILY DOSE REPORTED AS IF REQUIRED
     Dates: start: 20100222
  4. VIREAD [Concomitant]
     Dosage: TOTAL DAILY DOSE REPORTED AS 1 TABLET
     Dates: start: 20100107
  5. FORTIMEL [Concomitant]
     Dosage: TDD:2 VIALS
  6. DEXERYL [Concomitant]
     Dosage: TDD:1 APPLICATION
  7. PEGINTERFERON ALFA-2A [Suspect]
     Dosage: PEGASYS WAS REINTRODUCED AT A REDUED DOSE.
     Route: 058
     Dates: start: 20100309
  8. NEORECORMON [Concomitant]
     Dosage: TDD:30000 IU PER WEEK
  9. VIRAMUNE [Concomitant]
     Dates: start: 20080318
  10. PEGINTERFERON ALFA-2A [Suspect]
     Dosage: DRUG REPORTED AS PEGASYS, PERMANANTLY DISCONTINUED.
     Route: 058
     Dates: start: 20100219, end: 20101103
  11. NORVIR [Concomitant]
     Dates: start: 20080318

REACTIONS (2)
  - LUNG DISORDER [None]
  - PNEUMOCOCCAL INFECTION [None]
